FAERS Safety Report 9879781 (Version 3)
Quarter: 2014Q4

REPORT INFORMATION
  Report Type: Spontaneous
  Country: US (occurrence: US)
  Receive Date: 20140206
  Receipt Date: 20141028
  Transmission Date: 20150529
  Serious: Yes (Hospitalization, Other)
  Sender: FDA-Public Use
  Company Number: US-009507513-1402USA002877

PATIENT
  Sex: Female

DRUGS (1)
  1. NUVARING [Suspect]
     Active Substance: ETHINYL ESTRADIOL\ETONOGESTREL
     Indication: CONTRACEPTION
     Dosage: UNK
     Route: 067

REACTIONS (10)
  - Pulmonary embolism [Unknown]
  - Pulmonary infarction [Recovered/Resolved]
  - Varicose vein [Unknown]
  - Mouth haemorrhage [Recovered/Resolved]
  - Gastrointestinal haemorrhage [Unknown]
  - Peripheral venous disease [Unknown]
  - Iron deficiency [Recovered/Resolved]
  - Thyroid neoplasm [Unknown]
  - HIV infection [Unknown]
  - Fatigue [Recovering/Resolving]

NARRATIVE: CASE EVENT DATE: 20070622
